FAERS Safety Report 18925880 (Version 2)
Quarter: 2021Q1

REPORT INFORMATION
  Report Type: Report from Study
  Country: None (occurrence: LB)
  Receive Date: 20210222
  Receipt Date: 20210224
  Transmission Date: 20210420
  Serious: Yes (Death, Congenital Anomaly)
  Sender: FDA-Public Use
  Company Number: LB-ABBVIE-21K-093-3782173-00

PATIENT

DRUGS (1)
  1. HUMIRA [Suspect]
     Active Substance: ADALIMUMAB
     Indication: MATERNAL EXPOSURE TIMING UNSPECIFIED
     Route: 064

REACTIONS (3)
  - Trisomy 13 [Unknown]
  - Foetal exposure during pregnancy [Unknown]
  - Abortion induced [Fatal]

NARRATIVE: CASE EVENT DATE: 202011
